FAERS Safety Report 8937022 (Version 1)
Quarter: 2012Q4

REPORT INFORMATION
  Report Type: 
  Country: US (occurrence: US)
  Receive Date: 20121130
  Receipt Date: 20121130
  Transmission Date: 20130627
  Serious: Yes (Hospitalization)
  Sender: FDA-Public Use
  Company Number: US-MERCK-1205USA03174

PATIENT
  Age: 64 Year
  Sex: Female
  Weight: 84.82 kg

DRUGS (19)
  1. ZOLINZA [Suspect]
     Indication: LUNG ADENOCARCINOMA
     Dosage: 100 mg, qd
     Route: 048
     Dates: start: 20110107, end: 20110225
  2. CISPLATIN [Suspect]
     Indication: LUNG ADENOCARCINOMA
     Dosage: 75 mg/m2, every 21-day x 4
     Route: 042
     Dates: start: 20110110, end: 20110221
  3. CRESTOR [Concomitant]
     Dosage: 40 mg daily
  4. PEPCID AC [Concomitant]
     Dosage: 20 mg, bid
     Route: 048
  5. TOBRAMYCIN [Concomitant]
     Dosage: 0.3%. i -ii drops OU QID x7 days
     Dates: start: 20110216, end: 20110223
  6. ONGLYZA [Concomitant]
     Dosage: 5 mg daily
  7. DECADRON [Concomitant]
     Dosage: 4 mg, bid
     Route: 048
     Dates: start: 20110106
  8. PEMETREXED DISODIUM [Concomitant]
     Indication: LUNG ADENOCARCINOMA
     Dosage: every 21-day x 4
     Route: 042
  9. PERIOMED [Concomitant]
     Dosage: UNK, qd
     Dates: start: 20100428
  10. CENTRUM SILVER [Concomitant]
     Dosage: 1 DF, qd
     Dates: start: 20110105
  11. OXYCODONE [Concomitant]
     Dosage: 5/325 i-ii Q4 to 6 hours, prn.
  12. THERAPEUTIC RADIOPHARMACEUTICAL (UNSPECIFIED) [Concomitant]
     Dosage: once daily. Monday Thursday Friday .
     Dates: start: 20110105, end: 20120110
  13. FOLIC ACID [Concomitant]
     Dosage: 400 mg daily
  14. BENICAR [Concomitant]
     Dosage: 40 mg daily
  15. BYSTOLIC [Concomitant]
     Dosage: 10 mg daily
  16. CYANOCOBALAMIN [Concomitant]
     Dosage: 1st and 15th of each month
     Route: 030
  17. COMPAZINE [Concomitant]
     Dosage: 10 mg Q1 - 6 hours prn.
     Dates: start: 20110109
  18. EMEND [Concomitant]
     Dosage: UNK
     Dates: start: 20110110
  19. VITAMINS (UNSPECIFIED) [Concomitant]

REACTIONS (6)
  - Urinary tract infection [Recovered/Resolved]
  - Dehydration [Recovered/Resolved]
  - Electrolyte imbalance [Recovered/Resolved]
  - Hypokalaemia [Recovered/Resolved]
  - Nausea [Recovered/Resolved]
  - Vomiting [Recovered/Resolved]
